FAERS Safety Report 18380323 (Version 2)
Quarter: 2020Q4

REPORT INFORMATION
  Report Type: Spontaneous
  Country: US (occurrence: US)
  Receive Date: 20201013
  Receipt Date: 20201026
  Transmission Date: 20210114
  Serious: Yes (Other)
  Sender: FDA-Public Use
  Company Number: US-BEH-2020123384

PATIENT
  Sex: Female

DRUGS (2)
  1. HIZENTRA [Suspect]
     Active Substance: HUMAN IMMUNOGLOBULIN G
     Indication: IMMUNODEFICIENCY COMMON VARIABLE
     Dosage: 7 GRAM, QOW, WEEK 1 AND 3
     Route: 058
     Dates: start: 20191024
  2. HIZENTRA [Suspect]
     Active Substance: HUMAN IMMUNOGLOBULIN G
     Dosage: 7 GRAM, QOW, WEEK 2 AND 4
     Route: 058
     Dates: start: 20191024

REACTIONS (3)
  - Therapy interrupted [Unknown]
  - No adverse event [Unknown]
  - Limb operation [Unknown]
